FAERS Safety Report 8600081-5 (Version None)
Quarter: 2012Q3

REPORT INFORMATION
  Report Type: 
  Country: None (occurrence: None)
  Receive Date: 20120816
  Receipt Date: 20120803
  Transmission Date: 20120928
  Serious: Yes (Other)
  Sender: FDA-Public Use
  Company Number: NO-BAXTER-2012BAX000006

PATIENT
  Age: 52 Year
  Sex: Female

DRUGS (5)
  1. KIOVIG [Suspect]
     Route: 065
     Dates: start: 20120305, end: 20120309
  2. KIOVIG [Suspect]
     Route: 065
     Dates: start: 20120521, end: 20120525
  3. KIOVIG [Suspect]
     Route: 065
     Dates: start: 20120625, end: 20120628
  4. KIOVIG [Suspect]
     Indication: POLYNEUROPATHY
     Route: 065
     Dates: start: 20111001
  5. KIOVIG [Suspect]
     Route: 065
     Dates: start: 20120416, end: 20120420

REACTIONS (2)
  - HEPATITIS B SURFACE ANTIBODY POSITIVE [None]
  - HEPATITIS B CORE ANTIBODY POSITIVE [None]
